FAERS Safety Report 10169958 (Version 1)
Quarter: 2014Q2

REPORT INFORMATION
  Report Type: Spontaneous
  Country: BR (occurrence: BR)
  Receive Date: 20140513
  Receipt Date: 20140513
  Transmission Date: 20141212
  Serious: Yes (Hospitalization, Other)
  Sender: FDA-Public Use
  Company Number: BR-BRISTOL-MYERS SQUIBB COMPANY-20703211

PATIENT
  Age: 73 Year
  Sex: Male
  Weight: 65 kg

DRUGS (7)
  1. HYDREA CAPS [Suspect]
     Indication: POLYCYTHAEMIA VERA
  2. OMEPRAZOLE [Concomitant]
  3. FUROSEMIDE [Concomitant]
  4. MAREVAN [Concomitant]
  5. CLOPIDOGREL BISULFATE [Concomitant]
  6. CYTOTEC [Concomitant]
  7. ASPIRIN [Concomitant]

REACTIONS (2)
  - Cerebrovascular accident [Recovered/Resolved with Sequelae]
  - Drug administration error [Unknown]
